FAERS Safety Report 21402189 (Version 12)
Quarter: 2023Q2

REPORT INFORMATION
  Report Type: Report from Study
  Country: CO (occurrence: CO)
  Receive Date: 20221003
  Receipt Date: 20230619
  Transmission Date: 20230721
  Serious: Yes (Other)
  Sender: FDA-Public Use
  Company Number: CO-TAKEDA-2022TUS029109

PATIENT
  Age: 33 Year
  Sex: Female
  Weight: 67 kg

DRUGS (3)
  1. VEDOLIZUMAB [Suspect]
     Active Substance: VEDOLIZUMAB
     Indication: Crohn^s disease
     Dosage: 300 MILLIGRAM
     Route: 042
     Dates: start: 20220426
  2. VEDOLIZUMAB [Suspect]
     Active Substance: VEDOLIZUMAB
     Dosage: 300 MILLIGRAM, Q5WEEKS
     Route: 042
     Dates: start: 20220914
  3. VEDOLIZUMAB [Suspect]
     Active Substance: VEDOLIZUMAB
     Dosage: 300 MILLIGRAM, Q4WEEKS
     Route: 042
     Dates: start: 20221011

REACTIONS (20)
  - Haematochezia [Not Recovered/Not Resolved]
  - Lethargy [Recovering/Resolving]
  - Asthenopia [Recovering/Resolving]
  - Oxygen saturation decreased [Recovered/Resolved]
  - Somnolence [Unknown]
  - Dyspnoea [Recovering/Resolving]
  - Dizziness [Unknown]
  - Chest pain [Recovering/Resolving]
  - Blood pressure increased [Recovered/Resolved]
  - Paraesthesia [Recovering/Resolving]
  - Product availability issue [Unknown]
  - Off label use [Unknown]
  - Product prescribing error [Unknown]
  - Drug ineffective [Unknown]
  - Mucous stools [Not Recovered/Not Resolved]
  - Inflammation [Recovering/Resolving]
  - Diarrhoea [Recovering/Resolving]
  - Productive cough [Recovering/Resolving]
  - Vomiting [Not Recovered/Not Resolved]
  - Nasal congestion [Recovering/Resolving]

NARRATIVE: CASE EVENT DATE: 20220426
